FAERS Safety Report 9746037 (Version 1)
Quarter: 2013Q4

REPORT INFORMATION
  Report Type: Spontaneous
  Country: US (occurrence: US)
  Receive Date: 20131211
  Receipt Date: 20131211
  Transmission Date: 20140711
  Serious: Yes (Other)
  Sender: FDA-Public Use
  Company Number: US-AMGEN-USASP2013086526

PATIENT
  Age: 68 Year
  Sex: Female

DRUGS (2)
  1. ENBREL [Suspect]
     Indication: PSORIATIC ARTHROPATHY
     Dosage: UNK
     Route: 065
     Dates: start: 20121201, end: 20131028
  2. METHOTREXATE [Concomitant]
     Dosage: UNK

REACTIONS (3)
  - Cataract [Recovered/Resolved]
  - Impaired healing [Recovered/Resolved]
  - Arthralgia [Not Recovered/Not Resolved]
